FAERS Safety Report 16460007 (Version 1)
Quarter: 2019Q2

REPORT INFORMATION
  Report Type: Spontaneous
  Country: US (occurrence: US)
  Receive Date: 20190510
  Receipt Date: 20190510
  Transmission Date: 20190711
  Serious: Yes (Other)
  Sender: FDA-Public Use
  Company Number: None

PATIENT
  Age: 76 Year
  Sex: Female
  Weight: 56.7 kg

DRUGS (1)
  1. PROLIA [Suspect]
     Active Substance: DENOSUMAB
     Indication: OSTEOPOROSIS
     Dosage: ?          OTHER FREQUENCY:2 PER YEAR;OTHER ROUTE:INJECTION?
     Dates: start: 20160203, end: 20180909

REACTIONS (6)
  - Tremor [None]
  - Rash [None]
  - Back pain [None]
  - Dry skin [None]
  - Pruritus [None]
  - Dyspepsia [None]

NARRATIVE: CASE EVENT DATE: 20180915
